FAERS Safety Report 5133769-1 (Version None)
Quarter: 2006Q4

REPORT INFORMATION
  Report Type: 
  Country: None (occurrence: None)
  Receive Date: 20061018
  Receipt Date: 20061006
  Transmission Date: 20070319
  Serious: Yes (Other)
  Sender: FDA-Public Use
  Company Number: 2006123389

PATIENT
  Age: 61 Year
  Sex: Female

DRUGS (6)
  1. AROMASIN [Suspect]
     Indication: BREAST CANCER
     Dosage: 25 MG (25 MG, DAILY), ORAL
     Route: 048
     Dates: start: 20060404, end: 20060830
  2. COAPROVEL (HYDROCHLOROTHIAZIDE, IRBESARTAN) [Concomitant]
  3. PRAVASTATIN [Concomitant]
  4. ASPIRIN [Concomitant]
  5. PIASCLEDINE (PERSEAE OLEUM, SOYA OIL) [Concomitant]
  6. ESBERIVEN (MELILOT, RUTOSIDE) [Concomitant]

REACTIONS (2)
  - CATARACT [None]
  - RETINAL ISCHAEMIA [None]
